FAERS Safety Report 9112153 (Version 1)
Quarter: 2013Q1

REPORT INFORMATION
  Report Type: Spontaneous
  Country: US (occurrence: US)
  Receive Date: 20130219
  Receipt Date: 20130219
  Transmission Date: 20140127
  Serious: No
  Sender: FDA-Public Use
  Company Number: US-BRISTOL-MYERS SQUIBB COMPANY-16651929

PATIENT
  Age: 57 Year
  Sex: Female

DRUGS (1)
  1. ORENCIA [Suspect]
     Indication: RHEUMATOID ARTHRITIS
     Dosage: LAST DATE OF INFUSION: 24MAY2012,13SEP12?STRENGTH:250MG?FORM:INJ,POWDER,LYOPHILIZED
     Route: 042

REACTIONS (4)
  - Sinusitis [Unknown]
  - Headache [Unknown]
  - Nausea [Unknown]
  - Rheumatoid arthritis [Unknown]
